FAERS Safety Report 10948970 (Version 2)
Quarter: 2015Q2

REPORT INFORMATION
  Report Type: Report from Study
  Country: JP (occurrence: JP)
  Receive Date: 20150324
  Receipt Date: 20150427
  Transmission Date: 20150821
  Serious: Yes (Death)
  Sender: FDA-Public Use
  Company Number: JP-SA-2014SA141584

PATIENT
  Age: 53 Year
  Sex: Male
  Weight: 62 kg

DRUGS (12)
  1. LANIRAPID [Concomitant]
     Active Substance: METILDIGOXIN
     Route: 048
     Dates: end: 20141007
  2. ANCARON [Concomitant]
     Active Substance: AMIODARONE HYDROCHLORIDE
     Route: 048
     Dates: end: 20141007
  3. DEPAS [Concomitant]
     Active Substance: ETIZOLAM
     Route: 048
     Dates: end: 20141007
  4. PLAVIX [Suspect]
     Active Substance: CLOPIDOGREL BISULFATE
     Indication: PERIPHERAL ARTERIAL OCCLUSIVE DISEASE
     Route: 048
     Dates: start: 20141004, end: 20141007
  5. REGPARA [Concomitant]
     Active Substance: CINACALCET HYDROCHLORIDE
     Route: 048
     Dates: end: 20141007
  6. PURSENNID [Concomitant]
     Active Substance: SENNOSIDES A AND B
     Route: 048
     Dates: end: 20141007
  7. BAYASPIRIN [Concomitant]
     Active Substance: ASPIRIN
     Route: 048
     Dates: end: 20141007
  8. ARTIST [Concomitant]
     Active Substance: CARVEDILOL
     Route: 048
     Dates: end: 20141007
  9. NEXIUM [Concomitant]
     Active Substance: ESOMEPRAZOLE MAGNESIUM
     Route: 048
     Dates: end: 20141007
  10. SILECE [Concomitant]
     Active Substance: FLUNITRAZEPAM
     Route: 048
     Dates: end: 20141007
  11. ANPLAG [Concomitant]
     Active Substance: SARPOGRELATE
     Indication: PERIPHERAL ARTERIAL OCCLUSIVE DISEASE
     Route: 048
     Dates: end: 20111007
  12. GASTROM [Concomitant]
     Active Substance: ECABET
     Route: 048
     Dates: end: 20141007

REACTIONS (1)
  - Asthma [Fatal]

NARRATIVE: CASE EVENT DATE: 20141004
